APPROVED DRUG PRODUCT: BRIMONIDINE TARTRATE
Active Ingredient: BRIMONIDINE TARTRATE
Strength: 0.2%
Dosage Form/Route: SOLUTION/DROPS;OPHTHALMIC
Application: A217846 | Product #001 | TE Code: AT
Applicant: MICRO LABS LTD
Approved: Nov 22, 2023 | RLD: No | RS: No | Type: RX